FAERS Safety Report 5237954-X (Version None)
Quarter: 2007Q1

REPORT INFORMATION
  Report Type: 
  Country: None (occurrence: None)
  Receive Date: 20070214
  Receipt Date: 20070208
  Transmission Date: 20070707
  Serious: Yes (Hospitalization, Other)
  Sender: FDA-Public Use
  Company Number: BR-PFIZER INC-2007011137

PATIENT
  Sex: Male

DRUGS (1)
  1. FRONTAL [Suspect]
     Indication: ANXIETY
     Route: 048

REACTIONS (3)
  - LOWER LIMB FRACTURE [None]
  - PULMONARY EMBOLISM [None]
  - THROMBOSIS [None]
